FAERS Safety Report 9557212 (Version 2)
Quarter: 2014Q1

REPORT INFORMATION
  Report Type: Spontaneous
  Country: US (occurrence: US)
  Receive Date: 20130926
  Receipt Date: 20140214
  Transmission Date: 20141002
  Serious: Yes (Hospitalization, Other)
  Sender: FDA-Public Use
  Company Number: US-BAXTER-2013BAX037151

PATIENT
  Age: 72 Year
  Sex: Female

DRUGS (2)
  1. DIANEAL LOW CALCIUM [Suspect]
     Indication: RENAL FAILURE CHRONIC
     Route: 033
     Dates: start: 2012
  2. DIANEAL LOW CALCIUM [Suspect]
     Indication: RENAL FAILURE CHRONIC
     Route: 033
     Dates: start: 2012

REACTIONS (6)
  - Dizziness [Recovered/Resolved]
  - Hip fracture [Not Recovered/Not Resolved]
  - Fall [Not Recovered/Not Resolved]
  - Syncope [Recovered/Resolved]
  - Endocarditis [Not Recovered/Not Resolved]
  - Dehydration [Recovered/Resolved]
